FAERS Safety Report 6666292-3 (Version None)
Quarter: 2010Q2

REPORT INFORMATION
  Report Type: 
  Country: None (occurrence: None)
  Receive Date: 20100402
  Receipt Date: 20100325
  Transmission Date: 20101027
  Serious: Yes (Other)
  Sender: FDA-Public Use
  Company Number: US-CEPHALON-2010001754

PATIENT
  Sex: Female
  Weight: 91 kg

DRUGS (6)
  1. PROVIGIL [Suspect]
     Indication: FATIGUE
     Route: 048
     Dates: start: 20080101
  2. PROZAC [Concomitant]
     Indication: FATIGUE
     Route: 048
     Dates: start: 20071201, end: 20091201
  3. PROZAC [Concomitant]
     Indication: MYALGIA
  4. SAVELLA [Concomitant]
     Indication: FATIGUE
     Route: 048
     Dates: start: 20091201
  5. SAVELLA [Concomitant]
     Indication: MYALGIA
  6. ZOMIG [Concomitant]
     Indication: MIGRAINE
     Route: 048
     Dates: start: 20050101

REACTIONS (4)
  - DRUG INEFFECTIVE FOR UNAPPROVED INDICATION [None]
  - HYPOTHYROIDISM [None]
  - MUSCLE TIGHTNESS [None]
  - UTERINE DISORDER [None]
